FAERS Safety Report 25119851 (Version 2)
Quarter: 2025Q2

REPORT INFORMATION
  Report Type: Spontaneous
  Country: AR (occurrence: AR)
  Receive Date: 20250325
  Receipt Date: 20250411
  Transmission Date: 20250717
  Serious: Yes (Death, Hospitalization, Other)
  Sender: TAKEDA
  Company Number: AR-TAKEDA-2025TUS029755

PATIENT
  Age: 19 Year
  Sex: Female
  Weight: 37 kg

DRUGS (14)
  1. TEDUGLUTIDE [Suspect]
     Active Substance: TEDUGLUTIDE
     Indication: Short-bowel syndrome
  2. TEDUGLUTIDE [Suspect]
     Active Substance: TEDUGLUTIDE
  3. TEDUGLUTIDE [Suspect]
     Active Substance: TEDUGLUTIDE
  4. TEDUGLUTIDE [Suspect]
     Active Substance: TEDUGLUTIDE
  5. TEDUGLUTIDE [Suspect]
     Active Substance: TEDUGLUTIDE
     Indication: Product used for unknown indication
     Dosage: UNK UNK, QOD
     Dates: end: 20250204
  6. TEDUGLUTIDE [Suspect]
     Active Substance: TEDUGLUTIDE
  7. TEDUGLUTIDE [Suspect]
     Active Substance: TEDUGLUTIDE
  8. TEDUGLUTIDE [Suspect]
     Active Substance: TEDUGLUTIDE
  9. CALCIUM [Concomitant]
     Active Substance: CALCIUM
     Indication: Osteoporosis
  10. VITAMIN D [Concomitant]
     Active Substance: VITAMIN D NOS
     Indication: Osteoporosis
  11. IRON [Concomitant]
     Active Substance: IRON
     Indication: Functional gastrointestinal disorder
  12. VITAMIN B1 [Concomitant]
     Active Substance: THIAMINE HYDROCHLORIDE
     Indication: Functional gastrointestinal disorder
  13. VITAMIN B6 [Concomitant]
     Active Substance: PYRIDOXINE HYDROCHLORIDE
     Indication: Functional gastrointestinal disorder
  14. VITAMIN B12 [Concomitant]
     Active Substance: CYANOCOBALAMIN
     Indication: Functional gastrointestinal disorder

REACTIONS (20)
  - Cardiovascular disorder [Fatal]
  - Disseminated intravascular coagulation [Fatal]
  - Cardiac arrest [Fatal]
  - General physical health deterioration [Unknown]
  - Cardiac tamponade [Unknown]
  - Metabolic acidosis [Unknown]
  - Anaemia [Unknown]
  - Pallor [Unknown]
  - Hypocalcaemia [Unknown]
  - Renal failure [Unknown]
  - Acute kidney injury [Unknown]
  - Cardiac failure [Unknown]
  - Dyspnoea [Unknown]
  - Gastrointestinal disorder [Unknown]
  - Campylobacter infection [Unknown]
  - Diarrhoea [Unknown]
  - Apathy [Unknown]
  - Product prescribing error [Unknown]
  - Product use issue [Unknown]
  - Abdominal pain [Unknown]

NARRATIVE: CASE EVENT DATE: 20250204
